FAERS Safety Report 7293667-4 (Version None)
Quarter: 2011Q1

REPORT INFORMATION
  Report Type: 
  Country: None (occurrence: None)
  Receive Date: 20110215
  Receipt Date: 20110201
  Transmission Date: 20110831
  Serious: Yes (Life-Threatening, Hospitalization)
  Sender: FDA-Public Use
  Company Number: B0694813A

PATIENT
  Sex: Male
  Weight: 70 kg

DRUGS (1)
  1. ARIXTRA [Suspect]
     Dosage: 5MG PER DAY
     Route: 058
     Dates: start: 20101125, end: 20101203

REACTIONS (3)
  - RECTAL HAEMORRHAGE [None]
  - OFF LABEL USE [None]
  - SUBDURAL HAEMATOMA [None]
